FAERS Safety Report 10458242 (Version 3)
Quarter: 2014Q4

REPORT INFORMATION
  Report Type: Spontaneous
  Country: AU (occurrence: AU)
  Receive Date: 20140917
  Receipt Date: 20141218
  Transmission Date: 20150528
  Serious: Yes (Other)
  Sender: FDA-Public Use
  Company Number: AU-009507513-1409AUS005937

PATIENT
  Age: 33 Year
  Sex: Female

DRUGS (1)
  1. IMPLANON [Suspect]
     Active Substance: ETONOGESTREL
     Dosage: UNK
     Route: 059
     Dates: start: 20140715, end: 20140911

REACTIONS (2)
  - Suicidal ideation [Unknown]
  - Mood swings [Unknown]

NARRATIVE: CASE EVENT DATE: 2014
